APPROVED DRUG PRODUCT: BIVALIRUDIN
Active Ingredient: BIVALIRUDIN
Strength: 250MG/VIAL
Dosage Form/Route: INJECTABLE;INTRAVENOUS
Application: A205962 | Product #001
Applicant: EUGIA PHARMA SPECIALITIES LTD
Approved: Jul 27, 2018 | RLD: No | RS: No | Type: DISCN